FAERS Safety Report 14541679 (Version 1)
Quarter: 2018Q1

REPORT INFORMATION
  Report Type: Spontaneous
  Country: BR (occurrence: BR)
  Receive Date: 20180216
  Receipt Date: 20180216
  Transmission Date: 20180509
  Serious: Yes (Other)
  Sender: FDA-Public Use
  Company Number: BR-JNJFOC-20180222729

PATIENT
  Age: 31 Year
  Sex: Male

DRUGS (7)
  1. DICLOFENAC [Concomitant]
     Active Substance: DICLOFENAC
     Indication: PRODUCT USED FOR UNKNOWN INDICATION
     Route: 065
     Dates: start: 2016
  2. PREDSIM [Concomitant]
     Active Substance: PREDNISOLONE
     Indication: PRODUCT USED FOR UNKNOWN INDICATION
     Route: 065
     Dates: start: 2016
  3. TRAMAL [Suspect]
     Active Substance: TRAMADOL
     Indication: PAIN IN EXTREMITY
     Route: 065
     Dates: start: 2016
  4. TRAMAL [Suspect]
     Active Substance: TRAMADOL
     Indication: MUSCULOSKELETAL PAIN
     Route: 065
     Dates: start: 2016
  5. TRAMAL [Suspect]
     Active Substance: TRAMADOL
     Indication: ARTHRALGIA
     Route: 065
     Dates: start: 2016
  6. TRAMAL [Suspect]
     Active Substance: TRAMADOL
     Indication: PAIN IN EXTREMITY
     Route: 065
     Dates: start: 2016
  7. INDOMETACIN [Concomitant]
     Active Substance: INDOMETHACIN
     Indication: ANTIINFLAMMATORY THERAPY
     Route: 065
     Dates: start: 2016

REACTIONS (7)
  - Uveitis [Not Recovered/Not Resolved]
  - Drug ineffective [Not Recovered/Not Resolved]
  - Pyrexia [Not Recovered/Not Resolved]
  - Pain in extremity [Not Recovered/Not Resolved]
  - Musculoskeletal pain [Not Recovered/Not Resolved]
  - Arthralgia [Not Recovered/Not Resolved]
  - Swelling [Not Recovered/Not Resolved]

NARRATIVE: CASE EVENT DATE: 2016
